FAERS Safety Report 11513273 (Version 1)
Quarter: 2015Q3

REPORT INFORMATION
  Report Type: Spontaneous
  Country: US (occurrence: None)
  Receive Date: 20150915
  Receipt Date: 20150915
  Transmission Date: 20151125
  Serious: Yes (Other)
  Sender: FDA-Public Use
  Company Number: None

PATIENT
  Age: 28 Year
  Sex: Female
  Weight: 48.99 kg

DRUGS (3)
  1. AMITRIPTYLINE 10MG TABLETS [Suspect]
     Active Substance: AMITRIPTYLINE
     Indication: IRRITABLE BOWEL SYNDROME
     Dosage: 1 PILL AT BEDTIME TAKEN BY MOUTH
     Route: 048
     Dates: start: 20150713, end: 20150913
  2. METOPROLOL [Concomitant]
     Active Substance: METOPROLOL
  3. BENTYL [Concomitant]
     Active Substance: DICYCLOMINE HYDROCHLORIDE

REACTIONS (10)
  - Thinking abnormal [None]
  - Erythema [None]
  - Contusion [None]
  - Vertigo [None]
  - Pyrexia [None]
  - Confusional state [None]
  - Mood swings [None]
  - Hyperhidrosis [None]
  - Clumsiness [None]
  - Palpitations [None]

NARRATIVE: CASE EVENT DATE: 20150914
